FAERS Safety Report 24888385 (Version 1)
Quarter: 2025Q1

REPORT INFORMATION
  Report Type: Spontaneous
  Country: TW (occurrence: TW)
  Receive Date: 20250127
  Receipt Date: 20250127
  Transmission Date: 20250409
  Serious: Yes (Hospitalization, Other)
  Sender: MACLEODS
  Company Number: TW-MACLEODS PHARMA-MAC2025051314

PATIENT

DRUGS (7)
  1. QUETIAPINE [Suspect]
     Active Substance: QUETIAPINE
     Indication: Psychotic symptom
     Dosage: 50 MG PER DAY
     Route: 065
  2. QUETIAPINE [Suspect]
     Active Substance: QUETIAPINE
     Dosage: 475 MG/DAY
     Route: 065
  3. METHYLPREDNISOLONE [Concomitant]
     Active Substance: METHYLPREDNISOLONE
     Dosage: 1 G/DAY FOR 3 DAYS
     Route: 065
  4. PREDNISOLONE [Concomitant]
     Active Substance: PREDNISOLONE
     Dosage: 40 MG/DAY FOR 3 DAYS
     Route: 065
  5. PREDNISOLONE [Concomitant]
     Active Substance: PREDNISOLONE
     Dosage: 20 MG/DAY FOR 5 DAYS
     Route: 065
  6. PREDNISOLONE [Concomitant]
     Active Substance: PREDNISOLONE
     Dosage: 30 MG/DAY FOR MAINTENANCE THERAPY
     Route: 048
  7. RISPERDAL CONSTA [Concomitant]
     Active Substance: RISPERIDONE
     Indication: Psychotic symptom
     Dosage: 25 MG/VIAL INJECTION EVERY 2 WEEKS
     Route: 065

REACTIONS (4)
  - Pleurothotonus [Recovered/Resolved]
  - Hashimoto^s encephalopathy [Recovered/Resolved]
  - Dysuria [Unknown]
  - Fall [Unknown]
